FAERS Safety Report 4551269-4 (Version None)
Quarter: 2005Q1

REPORT INFORMATION
  Report Type: 
  Country: None (occurrence: None)
  Receive Date: 20050106
  Receipt Date: 20041221
  Transmission Date: 20050727
  Serious: Yes (Other)
  Sender: FDA-Public Use
  Company Number: JP_041205504

PATIENT
  Age: 2 Week
  Sex: Female
  Weight: 4 kg

DRUGS (1)
  1. VANCOMYCIN [Suspect]
     Indication: STAPHYLOCOCCAL INFECTION
     Dosage: 35 MG DAY
     Dates: start: 20041026, end: 20041026

REACTIONS (2)
  - NEONATAL DISORDER [None]
  - RED MAN SYNDROME [None]
